FAERS Safety Report 15384241 (Version 2)
Quarter: 2018Q4

REPORT INFORMATION
  Report Type: Spontaneous
  Country: BE (occurrence: BE)
  Receive Date: 20180914
  Receipt Date: 20181003
  Transmission Date: 20190204
  Serious: Yes (Life-Threatening, Hospitalization, Other)
  Sender: FDA-Public Use
  Company Number: BE-ACCORD-071424

PATIENT
  Age: 38 Year
  Sex: Female

DRUGS (2)
  1. QUETIAPINE. [Suspect]
     Active Substance: QUETIAPINE
     Indication: SCHIZOPHRENIA
     Dosage: 200 MG ONCE DAILY 1 AT NIGHT OVER 5 YEARS.
  2. ESCITALOPRAM/ESCITALOPRAM OXALATE [Concomitant]
     Indication: DEPRESSION
     Dosage: IN MORNING

REACTIONS (3)
  - Pancreatitis [Recovered/Resolved]
  - Thrombotic thrombocytopenic purpura [Recovering/Resolving]
  - Hypertriglyceridaemia [Recovered/Resolved]
